FAERS Safety Report 6596506-X (Version None)
Quarter: 2010Q1

REPORT INFORMATION
  Report Type: 
  Country: None (occurrence: None)
  Receive Date: 20100216
  Receipt Date: 20100204
  Transmission Date: 20100710
  Serious: Yes (Hospitalization)
  Sender: FDA-Public Use
  Company Number: 2010SP000375

PATIENT
  Age: 33 Year
  Sex: Female

DRUGS (5)
  1. LUNESTA [Suspect]
     Indication: INSOMNIA
     Dosage: 3 MG; PRN; ORAL, 3 MG; HS; ORAL
     Route: 048
     Dates: start: 20090901
  2. LUNESTA [Suspect]
     Indication: INSOMNIA
     Dosage: 3 MG; PRN; ORAL, 3 MG; HS; ORAL
     Route: 048
     Dates: start: 20091230
  3. SEROQUEL [Concomitant]
  4. ATIVAN [Concomitant]
  5. NORTRIPTYLINE HCL [Concomitant]

REACTIONS (7)
  - CONDITION AGGRAVATED [None]
  - DEPRESSION [None]
  - INTENTIONAL SELF-INJURY [None]
  - LOSS OF EMPLOYMENT [None]
  - PALPITATIONS [None]
  - STRESS [None]
  - SUICIDAL BEHAVIOUR [None]
